FAERS Safety Report 20287391 (Version 1)
Quarter: 2022Q1

REPORT INFORMATION
  Report Type: Spontaneous
  Country: US (occurrence: US)
  Receive Date: 20220103
  Receipt Date: 20220103
  Transmission Date: 20220423
  Serious: Yes (Other)
  Sender: FDA-Public Use
  Company Number: US-JNJFOC-20211223229

PATIENT
  Age: 37 Year
  Sex: Female

DRUGS (2)
  1. NEUTROGENA OIL FREE ACNE WASH PINK GRAPEFRUIT FACIAL CLEANSER [Suspect]
     Active Substance: SALICYLIC ACID
     Indication: Acne
     Dosage: 1 PUMP/TWICE DAILY
     Route: 061
     Dates: start: 20211205
  2. COSMETICS [Suspect]
     Active Substance: COSMETICS
     Indication: Product used for unknown indication
     Route: 061

REACTIONS (4)
  - Application site erythema [Recovered/Resolved]
  - Application site irritation [Recovered/Resolved]
  - Application site swelling [Recovered/Resolved]
  - Application site dryness [Recovered/Resolved]

NARRATIVE: CASE EVENT DATE: 20211207
